FAERS Safety Report 11424841 (Version 1)
Quarter: 2015Q3

REPORT INFORMATION
  Report Type: Spontaneous
  Country: US (occurrence: US)
  Receive Date: 20150821
  Receipt Date: 20150821
  Transmission Date: 20151125
  Serious: No
  Sender: FDA-Public Use
  Company Number: US-ELI_LILLY_AND_COMPANY-US201212003713

PATIENT
  Sex: Male

DRUGS (1)
  1. HUMINSULIN REGULAR [Suspect]
     Active Substance: INSULIN HUMAN
     Indication: DIABETES MELLITUS

REACTIONS (3)
  - Blood pressure increased [Unknown]
  - Tension [Unknown]
  - Stress [Unknown]

NARRATIVE: CASE EVENT DATE: 20121210
